FAERS Safety Report 7646915-2 (Version None)
Quarter: 2011Q3

REPORT INFORMATION
  Report Type: 
  Country: None (occurrence: None)
  Receive Date: 20110729
  Receipt Date: 20110729
  Transmission Date: 20111222
  Serious: Yes (Life-Threatening, Hospitalization)
  Sender: FDA-Public Use
  Company Number: None

PATIENT
  Age: 40 Year
  Sex: Male
  Weight: 104.3273 kg

DRUGS (2)
  1. LISINOPRIL [Concomitant]
  2. CHANTIX [Suspect]
     Indication: SMOKING CESSATION THERAPY
     Dosage: 1.0 MG BID ORAL ~2-3 WEEKS
     Route: 048

REACTIONS (3)
  - ROAD TRAFFIC ACCIDENT [None]
  - MULTIPLE INJURIES [None]
  - LOSS OF CONSCIOUSNESS [None]
